FAERS Safety Report 19963101 (Version 1)
Quarter: 2021Q4

REPORT INFORMATION
  Report Type: Spontaneous
  Country: PT (occurrence: PT)
  Receive Date: 20211018
  Receipt Date: 20211018
  Transmission Date: 20220303
  Serious: Yes (Other)
  Sender: FDA-Public Use
  Company Number: PT-MLMSERVICE-20151125-0088702-1

PATIENT
  Age: 13 Year
  Sex: Male

DRUGS (6)
  1. AMOXICILLIN\CLAVULANIC ACID [Suspect]
     Active Substance: AMOXICILLIN\CLAVULANIC ACID
     Indication: Chronic sinusitis
     Dosage: UNK
     Route: 048
  2. CEFTRIAXONE [Suspect]
     Active Substance: CEFTRIAXONE
     Indication: Extradural abscess
     Dosage: UNK,MENINGEAL DOSE
     Route: 042
  3. CEFTRIAXONE [Suspect]
     Active Substance: CEFTRIAXONE
     Indication: Antibiotic therapy
     Dosage: UNK
     Route: 065
  4. CLINDAMYCIN [Suspect]
     Active Substance: CLINDAMYCIN
     Indication: Product used for unknown indication
     Dosage: UNK
     Route: 042
  5. MEROPENEM [Suspect]
     Active Substance: MEROPENEM
     Indication: Extradural abscess
     Dosage: UNK
     Route: 065
  6. VANCOMYCIN [Suspect]
     Active Substance: VANCOMYCIN
     Indication: Product used for unknown indication
     Dosage: UNK, MENINGEAL DOSES
     Route: 042

REACTIONS (11)
  - Type IV hypersensitivity reaction [Recovered/Resolved]
  - Rash maculo-papular [Recovering/Resolving]
  - Pyrexia [Recovering/Resolving]
  - Prurigo [Recovering/Resolving]
  - Oral disorder [Recovering/Resolving]
  - Malaise [Recovering/Resolving]
  - Skin lesion [Recovering/Resolving]
  - Oral mucosal eruption [Recovered/Resolved]
  - Hypersensitivity [Unknown]
  - Condition aggravated [Unknown]
  - Drug ineffective [Unknown]
